FAERS Safety Report 8232957-5 (Version None)
Quarter: 2012Q1

REPORT INFORMATION
  Report Type: 
  Country: None (occurrence: None)
  Receive Date: 20120325
  Receipt Date: 20120312
  Transmission Date: 20120608
  Serious: Yes (Other)
  Sender: FDA-Public Use
  Company Number: CA-BRISTOL-MYERS SQUIBB COMPANY-16451619

PATIENT
  Age: 10 Year
  Sex: Female

DRUGS (9)
  1. ACETYLCYSTEINE [Suspect]
     Dosage: IV DOSAGE FOR ACETAMINOPHEN OVERDOSE
  2. VINCRISTINE [Suspect]
  3. FUROSEMIDE [Concomitant]
  4. MESNA [Suspect]
  5. DACTINOMYCIN [Suspect]
  6. MEROPENEM [Concomitant]
  7. ONDANSETRON [Concomitant]
  8. IFOSFAMIDE [Suspect]
  9. MORPHINE [Concomitant]

REACTIONS (3)
  - VOMITING [None]
  - POLYURIA [None]
  - ENCEPHALOPATHY [None]
